FAERS Safety Report 24157108 (Version 10)
Quarter: 2025Q3

REPORT INFORMATION
  Report Type: Spontaneous
  Country: US (occurrence: US)
  Receive Date: 20240731
  Receipt Date: 20250903
  Transmission Date: 20251021
  Serious: Yes (Hospitalization, Other)
  Sender: PFIZER
  Company Number: US-PFIZER INC-PV202400098179

PATIENT
  Age: 67 Year
  Sex: Female
  Weight: 73.8 kg

DRUGS (9)
  1. IBRANCE [Suspect]
     Active Substance: PALBOCICLIB
     Indication: Breast cancer female
     Route: 048
     Dates: start: 20240128
  2. IBRANCE [Suspect]
     Active Substance: PALBOCICLIB
     Indication: Hormone receptor positive breast cancer
     Dates: start: 202402
  3. IBRANCE [Suspect]
     Active Substance: PALBOCICLIB
     Route: 048
  4. IBRANCE [Suspect]
     Active Substance: PALBOCICLIB
     Route: 048
     Dates: start: 20250127, end: 20250319
  5. FULVESTRANT [Concomitant]
     Active Substance: FULVESTRANT
     Dates: start: 20240128
  6. XANAX [Concomitant]
     Active Substance: ALPRAZOLAM
     Route: 048
  7. NEURONTIN [Concomitant]
     Active Substance: GABAPENTIN
     Dosage: 400 MG EVERY EVENING
     Route: 048
     Dates: end: 20250318
  8. FASLODEX [Concomitant]
     Active Substance: FULVESTRANT
  9. LEVALBUTEROL TARTRATE [Concomitant]
     Active Substance: LEVALBUTEROL TARTRATE

REACTIONS (11)
  - Infection [Unknown]
  - Neutropenia [Recovering/Resolving]
  - Immunodeficiency [Unknown]
  - Cancer pain [Recovered/Resolved]
  - Fatigue [Recovering/Resolving]
  - Food allergy [Recovered/Resolved]
  - Wheezing [Recovering/Resolving]
  - Dyspnoea [Recovering/Resolving]
  - Allergy to chemicals [Recovering/Resolving]
  - Tachycardia [Unknown]
  - Product dispensing error [Unknown]

NARRATIVE: CASE EVENT DATE: 20240101
